FAERS Safety Report 7256515 (Version 2)
Quarter: 2014Q1

REPORT INFORMATION
  Report Type: Spontaneous
  Country: US (occurrence: None)
  Receive Date: 20100113
  Receipt Date: 20140221
  Transmission Date: 20141002
  Serious: Yes (Hospitalization, Other)
  Sender: FDA-Public Use
  Company Number: 2010S1000003

PATIENT
  Age: 54 Year
  Sex: Female

DRUGS (7)
  1. FLEET PHOSPHO-SODA [Suspect]
     Indication: COLONOSCOPY
     Dosage: 90 ML, 2 IN 24 HOURS, ORAL
     Route: 048
     Dates: start: 20070502, end: 20070502
  2. ZELNORM [Suspect]
     Indication: COLONOSCOPY
     Dosage: 1 IN 24 HOURS, ORAL
     Route: 048
     Dates: start: 20070502, end: 20070502
  3. SINGULAIR (MONTELUKAST SODIUM) TABLET [Concomitant]
  4. ADVAIR [Concomitant]
  5. DIOVAN HCT [Concomitant]
  6. ALBUTEROL (SALBUTAMOL) [Concomitant]
  7. ASPIRIN (ACETYLSALICYLIC ACID) [Concomitant]

REACTIONS (8)
  - Injury [None]
  - Nausea [None]
  - Hypophagia [None]
  - Dehydration [None]
  - Renal failure acute [None]
  - Renal tubular necrosis [None]
  - Tubulointerstitial nephritis [None]
  - Renal failure acute [None]
